FAERS Safety Report 12867442 (Version 3)
Quarter: 2016Q4

REPORT INFORMATION
  Report Type: Spontaneous
  Country: JP (occurrence: JP)
  Receive Date: 20161020
  Receipt Date: 20161114
  Transmission Date: 20170207
  Serious: Yes (Death, Life-Threatening, Hospitalization, Other)
  Sender: FDA-Public Use
  Company Number: JP-GILEAD-2016-0238831

PATIENT
  Age: 70 Year
  Sex: Female

DRUGS (11)
  1. NEXIUM [Concomitant]
     Active Substance: ESOMEPRAZOLE MAGNESIUM
  2. DEPAS [Concomitant]
     Active Substance: ETIZOLAM
  3. ZOPICLONE [Concomitant]
     Active Substance: ZOPICLONE
  4. THYRADIN [Concomitant]
     Active Substance: LEVOTHYROXINE
  5. SENNOSIDE                          /00571901/ [Concomitant]
     Active Substance: SENNOSIDES A AND B
  6. WARFARIN [Concomitant]
     Active Substance: WARFARIN
  7. ECABET SODIUM [Concomitant]
     Active Substance: ECABET SODIUM
  8. REBETOL [Suspect]
     Active Substance: RIBAVIRIN
     Indication: CHRONIC HEPATITIS C
     Dosage: 600 MG, UNK
     Route: 048
     Dates: start: 20160913, end: 20161013
  9. SOVALDI [Suspect]
     Active Substance: SOFOSBUVIR
     Indication: CHRONIC HEPATITIS C
     Dosage: 400 MG, UNK
     Route: 048
     Dates: start: 20160913, end: 20161013
  10. MEVALOTIN [Concomitant]
     Active Substance: PRAVASTATIN SODIUM
  11. BAYASPIRIN [Concomitant]
     Active Substance: ASPIRIN

REACTIONS (7)
  - Gallbladder oedema [Unknown]
  - Dyspnoea [Unknown]
  - Vena cava thrombosis [Unknown]
  - Pulmonary embolism [Fatal]
  - Pancreatitis acute [Unknown]
  - Hypoxic-ischaemic encephalopathy [Unknown]
  - Haemoglobin decreased [Unknown]

NARRATIVE: CASE EVENT DATE: 20161011
